FAERS Safety Report 4322312-2 (Version None)
Quarter: 2004Q1

REPORT INFORMATION
  Report Type: 
  Country: None (occurrence: None)
  Receive Date: 20040319
  Receipt Date: 20021204
  Transmission Date: 20041129
  Serious: Yes (Hospitalization)
  Sender: FDA-Public Use
  Company Number: 2002IC000338

PATIENT
  Age: 36 Year
  Sex: Female

DRUGS (6)
  1. FLUOROURACIL [Suspect]
     Indication: CERVIX CARCINOMA
     Dosage: 1 GM; INTRAVENOUS
     Route: 042
     Dates: start: 20021015, end: 20021017
  2. CISPLATIN [Suspect]
     Indication: CERVIX CARCINOMA
     Dosage: 40 MG; INTRAVENOUS
     Route: 042
     Dates: start: 20021016, end: 20021017
  3. NASEA [Concomitant]
  4. FOSMICIN S [Concomitant]
  5. SOLU-CORTEF [Concomitant]
  6. TAGAMET [Concomitant]

REACTIONS (3)
  - HEPATITIS [None]
  - MALAISE [None]
  - OEDEMA [None]
